FAERS Safety Report 16095877 (Version 1)
Quarter: 2019Q1

REPORT INFORMATION
  Report Type: Spontaneous
  Country: ES (occurrence: ES)
  Receive Date: 20190320
  Receipt Date: 20190320
  Transmission Date: 20190418
  Serious: Yes (Other)
  Sender: FDA-Public Use
  Company Number: ES-BAYER-2018-136668

PATIENT
  Age: 51 Year
  Sex: Female

DRUGS (2)
  1. STIVARGA [Suspect]
     Active Substance: REGORAFENIB
     Indication: ADENOCARCINOMA
     Dosage: UNK
     Dates: start: 20160406
  2. STIVARGA [Suspect]
     Active Substance: REGORAFENIB
     Indication: ADENOCARCINOMA
     Dosage: 120 MG, DAILY
     Route: 048

REACTIONS (13)
  - Rectal haemorrhage [None]
  - Genital herpes [None]
  - Palmar-plantar erythrodysaesthesia syndrome [None]
  - Epistaxis [None]
  - Oedema [None]
  - Haemorrhage [Recovered/Resolved]
  - Hypertension [Recovered/Resolved]
  - Vaginal haemorrhage [None]
  - Asthenia [None]
  - Intestinal obstruction [None]
  - Post-traumatic pain [None]
  - Thrombocytopenia [Recovered/Resolved]
  - Hypothyroidism [None]
